FAERS Safety Report 19943435 (Version 1)
Quarter: 2021Q4

REPORT INFORMATION
  Report Type: Spontaneous
  Country: JP (occurrence: JP)
  Receive Date: 20211012
  Receipt Date: 20211012
  Transmission Date: 20220303
  Serious: Yes (Death, Hospitalization)
  Sender: FDA-Public Use
  Company Number: JP-ELI_LILLY_AND_COMPANY-JP202110003427

PATIENT
  Age: 61 Year
  Sex: Female
  Weight: 47.5 kg

DRUGS (60)
  1. ADCIRCA [Suspect]
     Active Substance: TADALAFIL
     Indication: Pulmonary hypertension
     Dosage: 40 MG, DAILY
     Route: 065
     Dates: end: 20200705
  2. UPTRAVI [Suspect]
     Active Substance: SELEXIPAG
     Indication: Pulmonary hypertension
     Dosage: 0.2 MG, BID
     Route: 048
     Dates: start: 20190725, end: 20190729
  3. UPTRAVI [Suspect]
     Active Substance: SELEXIPAG
     Dosage: 0.4 MG, BID
     Route: 048
     Dates: start: 20190730, end: 20190807
  4. UPTRAVI [Suspect]
     Active Substance: SELEXIPAG
     Dosage: 0.2 MG, BID
     Route: 048
     Dates: start: 20190808, end: 20200705
  5. ALFACALCIDOL [Suspect]
     Active Substance: ALFACALCIDOL
     Indication: Hypocalcaemia
     Dosage: 1 UG, DAILY
     Route: 048
     Dates: start: 20190802, end: 20190805
  6. GIMERACIL\OTERACIL\TEGAFUR [Suspect]
     Active Substance: GIMERACIL\OTERACIL\TEGAFUR
     Indication: Product used for unknown indication
     Dosage: 4 DOSAGE FORM, DAILY
     Route: 048
     Dates: end: 20190802
  7. GIMERACIL\OTERACIL\TEGAFUR [Suspect]
     Active Substance: GIMERACIL\OTERACIL\TEGAFUR
     Dosage: 4 DOSAGE FORM, DAILY
     Route: 048
     Dates: start: 20190816
  8. GIMERACIL\OTERACIL\TEGAFUR [Suspect]
     Active Substance: GIMERACIL\OTERACIL\TEGAFUR
     Dosage: 80 MG, DAILY
     Route: 048
     Dates: start: 20190822, end: 20200618
  9. TAPENTADOL HYDROCHLORIDE [Suspect]
     Active Substance: TAPENTADOL HYDROCHLORIDE
     Indication: Cancer pain
     Dosage: 50 MG, DAILY
     Route: 048
     Dates: start: 20200501, end: 20200605
  10. TAPENTADOL HYDROCHLORIDE [Suspect]
     Active Substance: TAPENTADOL HYDROCHLORIDE
     Dosage: 50 MG, DAILY
     Route: 065
     Dates: start: 20200626, end: 20200628
  11. TAPENTADOL HYDROCHLORIDE [Suspect]
     Active Substance: TAPENTADOL HYDROCHLORIDE
     Dosage: 50 MG, DAILY
     Route: 065
     Dates: start: 20200629, end: 20200705
  12. OPSUMIT [Concomitant]
     Active Substance: MACITENTAN
     Indication: Pulmonary hypertension
     Dosage: 10 MG, UNKNOWN
     Dates: end: 20200705
  13. MAGNESIUM OXIDE [Concomitant]
     Active Substance: MAGNESIUM OXIDE
     Indication: Constipation
     Dosage: UNK, UNKNOWN
     Dates: start: 20200626, end: 20200705
  14. EDOXABAN TOSYLATE [Concomitant]
     Active Substance: EDOXABAN TOSYLATE
     Indication: Product used for unknown indication
     Dosage: 30 MG, UNKNOWN
     Dates: end: 20190808
  15. FUROSEMIDE [Concomitant]
     Active Substance: FUROSEMIDE
     Indication: Cardiac failure
     Dosage: 20 MG, UNKNOWN
     Dates: end: 20190726
  16. FUROSEMIDE [Concomitant]
     Active Substance: FUROSEMIDE
     Dosage: 40 MG, UNKNOWN
     Dates: start: 20190727, end: 20190802
  17. ZOLPIDEM [Concomitant]
     Active Substance: ZOLPIDEM TARTRATE
     Indication: Product used for unknown indication
     Dosage: 5 MG
  18. SPIRONOLACTONE [Concomitant]
     Active Substance: SPIRONOLACTONE
     Indication: Cardiac failure
     Dosage: 25 MG
     Dates: end: 20190807
  19. DOBUTAMINE HYDROCHLORIDE [Concomitant]
     Active Substance: DOBUTAMINE HYDROCHLORIDE
     Indication: Cardiac failure
     Dosage: 16.8 ML
     Dates: end: 20190729
  20. PRIMPERAN [Concomitant]
     Active Substance: METOCLOPRAMIDE HYDROCHLORIDE
     Indication: Nausea
     Dosage: 10 MG
     Dates: start: 20190728, end: 20190728
  21. CALCIUM GLUCONATE [Concomitant]
     Active Substance: CALCIUM GLUCONATE
     Indication: Hypocalcaemia
     Dosage: UNK UNK, UNKNOWN
     Dates: start: 20190729, end: 20190802
  22. VITAMEDIN [CYANOCOBALAMIN;PYRIDOXINE HYDROCHL [Concomitant]
     Indication: Pyrexia
     Dosage: 1 DOSAGE FORM
     Dates: start: 20190806, end: 20190809
  23. VITAMEDIN [CYANOCOBALAMIN;PYRIDOXINE HYDROCHL [Concomitant]
     Indication: Gastric cancer
     Dosage: 1 DOSAGE FORM
     Dates: start: 20200705, end: 20200710
  24. VITAMIN C [Concomitant]
     Active Substance: ASCORBIC ACID
     Indication: Gastric cancer
     Dosage: 500 MG
     Dates: start: 20190806, end: 20190809
  25. ACETAMINOPHEN [Concomitant]
     Active Substance: ACETAMINOPHEN
     Indication: Urinary tract infection
     Dosage: UNK
     Dates: start: 20190804, end: 20190805
  26. ACETAMINOPHEN [Concomitant]
     Active Substance: ACETAMINOPHEN
     Dosage: 2400 MG
     Dates: start: 20200706, end: 20200710
  27. CEFTRIAXONE SODIUM [Concomitant]
     Active Substance: CEFTRIAXONE SODIUM
     Indication: Urinary tract infection
     Dosage: 2 G
     Dates: start: 20190805, end: 20190806
  28. KCL CORRECTIVE [Concomitant]
     Indication: Product used for unknown indication
     Dosage: 20 ML
     Dates: start: 20190808, end: 20190809
  29. DECADRON (DEXAMETHASONE SODIUM PHOSPHATE) [Concomitant]
     Active Substance: DEXAMETHASONE SODIUM PHOSPHATE
     Indication: Product used for unknown indication
     Dosage: UNK
     Dates: start: 20190816, end: 20200605
  30. ALOXI [Concomitant]
     Active Substance: PALONOSETRON HYDROCHLORIDE
     Indication: Product used for unknown indication
     Dosage: UNK
     Dates: start: 20190816
  31. ALOXI [Concomitant]
     Active Substance: PALONOSETRON HYDROCHLORIDE
     Dosage: UNK
     Dates: start: 20191206, end: 20200605
  32. OXALIPLATIN [Concomitant]
     Active Substance: OXALIPLATIN
     Indication: Product used for unknown indication
     Dosage: UNK
     Dates: start: 20190816, end: 20191108
  33. OXALIPLATIN [Concomitant]
     Active Substance: OXALIPLATIN
     Dosage: UNK
     Dates: start: 20191206, end: 20200605
  34. AZOSEMIDE [Concomitant]
     Active Substance: AZOSEMIDE
     Indication: Cardiac failure
     Dosage: UNK
     Dates: start: 20190816, end: 20200705
  35. SODIUM FERROUS CITRATE [Concomitant]
     Active Substance: SODIUM FERROUS CITRATE
     Indication: Product used for unknown indication
     Dosage: 100 MG
     Dates: start: 20191011, end: 20200205
  36. MOSAPRIDE CITRATE DIHYDRATE [Concomitant]
     Active Substance: MOSAPRIDE CITRATE DIHYDRATE
     Indication: Prophylaxis
     Dosage: 15 MG
     Dates: start: 20191011, end: 20191205
  37. MOSAPRIDE CITRATE DIHYDRATE [Concomitant]
     Active Substance: MOSAPRIDE CITRATE DIHYDRATE
     Dosage: 10 MG
     Dates: start: 20191206, end: 20200705
  38. LOPERAMIDE HYDROCHLORIDE [Concomitant]
     Active Substance: LOPERAMIDE HYDROCHLORIDE
     Indication: Diarrhoea
     Dosage: UNK
     Dates: start: 20190805
  39. LEVOFLOXACIN HEMIHYDRATE [Concomitant]
     Active Substance: LEVOFLOXACIN
     Indication: Urinary tract infection
     Dosage: 500 MG
     Dates: start: 20190806, end: 20190807
  40. ELDECALCITOL [Concomitant]
     Active Substance: ELDECALCITOL
     Indication: Hypocalcaemia
     Dosage: 0.75 UG
     Dates: start: 20190806, end: 20200705
  41. FAMOTIDINE [Concomitant]
     Active Substance: FAMOTIDINE
     Indication: Nausea
     Dosage: 40 MG
     Dates: start: 20190806, end: 20200705
  42. OLOPATADINE HYDROCHLORIDE OD [Concomitant]
     Indication: Toxic skin eruption
     Dosage: 10 MG
     Dates: start: 20190807, end: 20190823
  43. WARFARIN POTASSIUM [Concomitant]
     Active Substance: WARFARIN POTASSIUM
     Indication: Product used for unknown indication
     Dosage: UNK
     Dates: start: 20190809, end: 20200704
  44. KETOPROFEN [Concomitant]
     Active Substance: KETOPROFEN
     Indication: Product used for unknown indication
     Dosage: 20 MG
  45. ALFACALCIDOL [Concomitant]
     Active Substance: ALFACALCIDOL
     Indication: Hypocalcaemia
     Dosage: 0.25 UG
     Dates: start: 20190730, end: 20190801
  46. BROTIZOLAM [Concomitant]
     Active Substance: BROTIZOLAM
     Indication: Product used for unknown indication
     Dosage: 0.25 MG
  47. CALCIUM LACTATE [Concomitant]
     Active Substance: CALCIUM LACTATE
     Indication: Hypocalcaemia
     Dosage: 2000 MG
     Dates: start: 20190730, end: 20190801
  48. POTASSIUM CHLORIDE [Concomitant]
     Active Substance: POTASSIUM CHLORIDE
     Indication: Product used for unknown indication
     Dosage: 1200 MG
     Dates: start: 20190804, end: 20190807
  49. BILASTINE [Concomitant]
     Active Substance: BILASTINE
     Indication: Nasal congestion
     Dosage: 20 MG
     Dates: start: 20200207, end: 20200401
  50. RIKKUNSHITO [ATRACTYLODES LANCEA RHIZOME;CITR [Concomitant]
     Indication: Product used for unknown indication
     Dosage: 5 G
     Dates: start: 20200207, end: 20200318
  51. ACOTIAMIDE HYDROCHLORIDE [Concomitant]
     Active Substance: ACOTIAMIDE HYDROCHLORIDE
     Indication: Product used for unknown indication
     Dosage: 200 MG
     Dates: start: 20200501, end: 20200528
  52. GASCON [DIMETICONE] [Concomitant]
     Indication: Product used for unknown indication
     Dosage: 240 MG
     Dates: start: 20200529, end: 20200605
  53. LINZESS [Concomitant]
     Active Substance: LINACLOTIDE
     Indication: Constipation
     Dosage: 0.25 MG
     Dates: start: 20200605, end: 20200704
  54. VESICARE [Concomitant]
     Active Substance: SOLIFENACIN SUCCINATE
     Indication: Pollakiuria
     Dosage: UNK
     Dates: start: 20200605
  55. GARENOXACIN MESYLATE [Concomitant]
     Active Substance: GARENOXACIN MESYLATE
     Indication: Pollakiuria
     Dosage: UNK
     Dates: start: 20200605
  56. METOCLOPRAMIDE HYDROCHLORIDE [Concomitant]
     Active Substance: METOCLOPRAMIDE HYDROCHLORIDE
     Indication: Pollakiuria
     Dosage: UNK
     Dates: start: 20200605
  57. ASCORBIC ACID [Concomitant]
     Active Substance: ASCORBIC ACID
     Indication: Gastric cancer
     Dosage: 500 MG
     Dates: start: 20200705, end: 20200710
  58. OMEPRAZOLE SODIUM [Concomitant]
     Active Substance: OMEPRAZOLE SODIUM
     Indication: Prophylaxis
     Dosage: 40 MG
     Dates: start: 20200705, end: 20200710
  59. PIPERACILLIN SODIUM [Concomitant]
     Active Substance: PIPERACILLIN SODIUM
     Indication: Product used for unknown indication
     Dosage: 4 G
     Dates: start: 20200708, end: 20200710
  60. SOLU-CORTEF [Concomitant]
     Active Substance: HYDROCORTISONE SODIUM SUCCINATE
     Indication: Product used for unknown indication
     Dosage: 300 MG
     Dates: start: 20200709, end: 20200710

REACTIONS (3)
  - Gastric cancer [Fatal]
  - General physical health deterioration [Fatal]
  - Cancer pain [Not Recovered/Not Resolved]

NARRATIVE: CASE EVENT DATE: 20200110
